FAERS Safety Report 7076127-5 (Version None)
Quarter: 2010Q4

REPORT INFORMATION
  Report Type: 
  Country: None (occurrence: None)
  Receive Date: 20101021
  Receipt Date: 20100924
  Transmission Date: 20110411
  Serious: Yes (Other)
  Sender: FDA-Public Use
  Company Number: 2010MA003661

PATIENT
  Age: 45 Year
  Sex: Female

DRUGS (3)
  1. MIRTAZAPINE [Suspect]
     Indication: ANXIETY
     Dosage: 45 MG;QD
     Dates: start: 20090420
  2. NAPROXEN [Concomitant]
  3. PARACETAMOL [Concomitant]

REACTIONS (1)
  - FATIGUE [None]
